FAERS Safety Report 18559862 (Version 1)
Quarter: 2020Q4

REPORT INFORMATION
  Report Type: Spontaneous
  Country: CN (occurrence: CN)
  Receive Date: 20201130
  Receipt Date: 20201130
  Transmission Date: 20210114
  Serious: Yes (Other)
  Sender: FDA-Public Use
  Company Number: CN-ROCHE-2723144

PATIENT
  Age: 78 Year
  Sex: Male

DRUGS (1)
  1. ACTILYSE [Suspect]
     Active Substance: ALTEPLASE
     Indication: THROMBOLYSIS
     Dosage: DOSE: 0.9MG/KG FREQUENCY: 1, FREQUENCY UNIT: 809
     Route: 065

REACTIONS (1)
  - Carotid artery occlusion [Unknown]
